FAERS Safety Report 8844579 (Version 1)
Quarter: 2012Q4

REPORT INFORMATION
  Report Type: Spontaneous
  Country: US (occurrence: None)
  Receive Date: 20121016
  Receipt Date: 20121016
  Transmission Date: 20130627
  Serious: Yes (Hospitalization)
  Sender: FDA-Public Use
  Company Number: None

PATIENT
  Age: 89 Year
  Sex: Male
  Weight: 68.18 kg

DRUGS (9)
  1. ASA [Suspect]
     Indication: CORONARY ARTERY DISEASE
     Dosage: chronic
     Route: 048
  2. DOCUSATE [Concomitant]
  3. FUROSEMIDE [Concomitant]
  4. LUMIGAN [Concomitant]
  5. KCL [Concomitant]
  6. PRVASTATIN [Concomitant]
  7. VITAMIN D [Concomitant]
  8. TYLENOL [Concomitant]
  9. NTG [Concomitant]

REACTIONS (2)
  - Rectal haemorrhage [None]
  - Haemorrhagic anaemia [None]
